FAERS Safety Report 7212686-7 (Version None)
Quarter: 2010Q4

REPORT INFORMATION
  Report Type: 
  Country: None (occurrence: None)
  Receive Date: 20101227
  Receipt Date: 20101210
  Transmission Date: 20110411
  Serious: Yes (Other)
  Sender: FDA-Public Use
  Company Number: AUR-APL-2010-03176

PATIENT
  Age: 56 Year
  Sex: Female
  Weight: 66 kg

DRUGS (4)
  1. ATENOLOL [Suspect]
     Indication: HYPERTENSION
     Dosage: 25MG- BID
  2. LISINOPRIL [Suspect]
     Indication: HYPERTENSION
     Dosage: 40MG QD
  3. CHANTIX [Suspect]
     Indication: SMOKING CESSATION THERAPY
     Dosage: 0.5MG-QD-ORAL
     Route: 048
     Dates: start: 20101202
  4. PRAVASTATIN [Suspect]
     Indication: HYPERTENSION
     Dosage: 10MG-QD-

REACTIONS (7)
  - DRUG DOSE OMISSION [None]
  - FLUSHING [None]
  - LIP SWELLING [None]
  - NAUSEA [None]
  - SALIVARY HYPERSECRETION [None]
  - SWELLING FACE [None]
  - VOMITING [None]
